FAERS Safety Report 24343977 (Version 1)
Quarter: 2024Q3

REPORT INFORMATION
  Report Type: Spontaneous
  Country: ES (occurrence: ES)
  Receive Date: 20240920
  Receipt Date: 20240920
  Transmission Date: 20241016
  Serious: Yes (Other)
  Sender: AMGEN
  Company Number: ES-AMGEN-ESPSP2024184894

PATIENT

DRUGS (1)
  1. XGEVA [Suspect]
     Active Substance: DENOSUMAB
     Indication: Product used for unknown indication
     Dosage: 35 MILLIGRAM
     Route: 058

REACTIONS (9)
  - Syncope [Unknown]
  - Blood creatine phosphokinase increased [Unknown]
  - Nasopharyngitis [Unknown]
  - Blood triglycerides increased [Unknown]
  - Urinary tract infection [Unknown]
  - Headache [Unknown]
  - Arthralgia [Unknown]
  - Rash papular [Unknown]
  - Off label use [Unknown]
